FAERS Safety Report 8958183 (Version 4)
Quarter: 2013Q2

REPORT INFORMATION
  Report Type: Report from Study
  Country: US (occurrence: US)
  Receive Date: 20121211
  Receipt Date: 20130514
  Transmission Date: 20140414
  Serious: Yes (Other)
  Sender: FDA-Public Use
  Company Number: PHEH2012US018432

PATIENT
  Age: 48 Year
  Sex: Female
  Weight: 49.89 kg

DRUGS (1)
  1. GILENYA [Suspect]
     Indication: MULTIPLE SCLEROSIS
     Dosage: 0.5 MG, QD
     Route: 048
     Dates: start: 20120913

REACTIONS (19)
  - Blindness [Unknown]
  - Retching [Unknown]
  - Musculoskeletal stiffness [Unknown]
  - Night sweats [Recovered/Resolved]
  - Visual impairment [Unknown]
  - Vomiting [Unknown]
  - Chest discomfort [Unknown]
  - Decreased appetite [Unknown]
  - Local swelling [Recovered/Resolved]
  - Dyspnoea [Not Recovered/Not Resolved]
  - Cough [Not Recovered/Not Resolved]
  - Urinary tract infection [Unknown]
  - Headache [Recovered/Resolved]
  - Multiple sclerosis relapse [Recovered/Resolved]
  - Paraesthesia [Recovered/Resolved]
  - Hypoaesthesia [Recovered/Resolved]
  - Motor dysfunction [Recovered/Resolved]
  - Dizziness [Recovered/Resolved]
  - Nausea [Recovered/Resolved]
